FAERS Safety Report 4756290-9 (Version None)
Quarter: 2005Q3

REPORT INFORMATION
  Report Type: 
  Country: None (occurrence: None)
  Receive Date: 20050830
  Receipt Date: 20050523
  Transmission Date: 20060218
  Serious: No
  Sender: FDA-Public Use
  Company Number: US-GLAXOSMITHKLINE-A0559737A

PATIENT
  Age: 58 Year
  Sex: Male

DRUGS (4)
  1. WELLBUTRIN XL [Suspect]
     Indication: DEPRESSION
     Dosage: 300MG PER DAY
     Route: 048
     Dates: start: 20050519
  2. AMBIEN [Concomitant]
  3. KLONOPIN [Concomitant]
  4. LOTENSIN [Concomitant]

REACTIONS (3)
  - INSOMNIA [None]
  - PAIN OF SKIN [None]
  - SENSORY DISTURBANCE [None]
